FAERS Safety Report 10787546 (Version 1)
Quarter: 2015Q1

REPORT INFORMATION
  Report Type: Spontaneous
  Country: GB (occurrence: GB)
  Receive Date: 20150212
  Receipt Date: 20150212
  Transmission Date: 20150721
  Serious: Yes (Death, Other)
  Sender: FDA-Public Use
  Company Number: GB-AUROBINDO-AUR-APL-2015-01108

PATIENT
  Age: 75 Year
  Sex: Female

DRUGS (1)
  1. NAPROXEN 250MG [Suspect]
     Active Substance: NAPROXEN
     Indication: PRODUCT USED FOR UNKNOWN INDICATION
     Dosage: 250 MG, UNK
     Route: 065

REACTIONS (5)
  - Bronchiectasis [Fatal]
  - Product packaging confusion [Unknown]
  - Pulmonary fibrosis [Fatal]
  - Drug dispensing error [Unknown]
  - Dyspnoea [Not Recovered/Not Resolved]
